FAERS Safety Report 10564986 (Version 2)
Quarter: 2014Q4

REPORT INFORMATION
  Report Type: Spontaneous
  Country: US (occurrence: US)
  Receive Date: 20141105
  Receipt Date: 20141121
  Transmission Date: 20150529
  Serious: No
  Sender: FDA-Public Use
  Company Number: US-009507513-1410USA011821

PATIENT
  Age: 30 Year
  Sex: Female
  Weight: 125.17 kg

DRUGS (2)
  1. NEXPLANON [Suspect]
     Active Substance: ETONOGESTREL
     Dosage: 1 ROD IN THREE YEARS
     Route: 059
     Dates: start: 20141021
  2. NEXPLANON [Suspect]
     Active Substance: ETONOGESTREL
     Dosage: 1 ROD IN THREE YEARS
     Route: 059
     Dates: start: 20110803, end: 20141021

REACTIONS (3)
  - Incorrect drug administration duration [Unknown]
  - Device kink [Recovered/Resolved]
  - No adverse event [Unknown]

NARRATIVE: CASE EVENT DATE: 20140804
